FAERS Safety Report 9778998 (Version 3)
Quarter: 2014Q1

REPORT INFORMATION
  Report Type: Spontaneous
  Country: IT (occurrence: IT)
  Receive Date: 20131223
  Receipt Date: 20140224
  Transmission Date: 20141002
  Serious: Yes (Hospitalization)
  Sender: FDA-Public Use
  Company Number: IT-BRISTOL-MYERS SQUIBB COMPANY-19917814

PATIENT
  Age: 1 Year
  Sex: Male

DRUGS (3)
  1. COUMADIN TABS 5 MG [Suspect]
     Route: 048
     Dates: start: 20131117
  2. DILATREND [Suspect]
     Dosage: DILATREND 6.25 MG TABS
     Route: 048
     Dates: start: 20131117
  3. DIURESIX [Suspect]
     Dosage: DIURESIX 10 MG TABS
     Route: 048
     Dates: start: 20131117

REACTIONS (3)
  - Accidental exposure to product by child [Recovered/Resolved]
  - Tachycardia [Recovered/Resolved]
  - Vomiting [Recovered/Resolved]
